FAERS Safety Report 24190710 (Version 1)
Quarter: 2024Q3

REPORT INFORMATION
  Report Type: Spontaneous
  Country: DE (occurrence: DE)
  Receive Date: 20240808
  Receipt Date: 20240808
  Transmission Date: 20241016
  Serious: Yes (Other)
  Sender: MYLAN
  Company Number: DE-DCGMA-24203663

PATIENT
  Sex: Female
  Weight: 95 kg

DRUGS (1)
  1. GLATIRAMER [Suspect]
     Active Substance: GLATIRAMER
     Indication: Multiple sclerosis
     Dosage: 20 MILLIGRAM
     Route: 065

REACTIONS (4)
  - Blister [Unknown]
  - Skin reaction [Unknown]
  - Nodule [Unknown]
  - Erythema [Unknown]
